FAERS Safety Report 25963478 (Version 1)
Quarter: 2025Q4

REPORT INFORMATION
  Report Type: Spontaneous
  Country: US (occurrence: None)
  Receive Date: 20251024
  Receipt Date: 20251024
  Transmission Date: 20260118
  Serious: Yes (Hospitalization)
  Sender: FDA-CTU
  Company Number: None

PATIENT
  Age: 16 Year
  Sex: Male

DRUGS (1)
  1. RINVOQ [Suspect]
     Active Substance: UPADACITINIB
     Indication: Colitis ulcerative
     Dosage: 45 MG DAILY ORAL
     Route: 048
     Dates: start: 20250606

REACTIONS (2)
  - Colitis ulcerative [None]
  - Condition aggravated [None]

NARRATIVE: CASE EVENT DATE: 20250822
